FAERS Safety Report 5377627-6 (Version None)
Quarter: 2007Q3

REPORT INFORMATION
  Report Type: 
  Country: None (occurrence: None)
  Receive Date: 20070703
  Receipt Date: 20070623
  Transmission Date: 20080115
  Serious: Yes (Other)
  Sender: FDA-Public Use
  Company Number: US-PFIZER INC-2007051927

PATIENT
  Sex: Male

DRUGS (2)
  1. TIKOSYN [Suspect]
  2. SITAGLIPTIN [Interacting]
     Indication: DIABETES MELLITUS

REACTIONS (6)
  - DIABETES MELLITUS [None]
  - DIZZINESS [None]
  - DRUG INTERACTION [None]
  - FATIGUE [None]
  - HOT FLUSH [None]
  - NERVOUSNESS [None]
